FAERS Safety Report 18036680 (Version 1)
Quarter: 2020Q3

REPORT INFORMATION
  Report Type: Spontaneous
  Country: NL (occurrence: NL)
  Receive Date: 20200717
  Receipt Date: 20200717
  Transmission Date: 20201103
  Serious: Yes (Hospitalization)
  Sender: FDA-Public Use
  Company Number: NL-ACCORD-190968

PATIENT
  Age: 61 Year
  Sex: Male
  Weight: 93 kg

DRUGS (2)
  1. METHOTREXATE. [Suspect]
     Active Substance: METHOTREXATE
     Indication: LYMPHOMA TRANSFORMATION
     Dosage: IV, HIGH DOSE OF METHOTREXATE
     Dates: start: 20200617, end: 20200618
  2. TAZOCIN [Interacting]
     Active Substance: PIPERACILLIN SODIUM\TAZOBACTAM SODIUM
     Indication: FEBRILE NEUTROPENIA
     Dosage: 4DD IV
     Dates: start: 20200617, end: 20200622

REACTIONS (4)
  - Drug level above therapeutic [Recovered/Resolved]
  - Off label use [Unknown]
  - Renal failure [Recovered/Resolved]
  - Drug interaction [Unknown]

NARRATIVE: CASE EVENT DATE: 20200619
